FAERS Safety Report 6552835-7 (Version None)
Quarter: 2010Q1

REPORT INFORMATION
  Report Type: 
  Country: None (occurrence: None)
  Receive Date: 20100121
  Receipt Date: 20100111
  Transmission Date: 20100710
  Serious: Yes (Hospitalization, Disabling)
  Sender: FDA-Public Use
  Company Number: 471528

PATIENT
  Age: 14 Year
  Sex: Male
  Weight: 43 kg

DRUGS (46)
  1. METHOTREXATE [Suspect]
     Indication: DRUG USE FOR UNKNOWN INDICATION
     Dosage: 17GRAM, INTRAVENOUS
     Route: 042
  2. (ZOLEDRONIC ACID) [Suspect]
     Indication: DRUG USE FOR UNKNOWN INDICATION
     Dosage: 3.5MG, ONCE EVERY MONTH, INTRAVENOUS
     Route: 042
  3. ACETAMINOPHEN [Concomitant]
  4. CALCIUM CARBONATE [Concomitant]
  5. (ALTEPLASE) [Concomitant]
  6. ALUMINUM HYDROXIDE GEL [Concomitant]
  7. BUDESONIDE [Concomitant]
  8. ACETAMINOPHEN [Concomitant]
  9. CEFOXITIN [Concomitant]
  10. (COLECALCIFEROL) [Concomitant]
  11. CISPLATIN [Concomitant]
  12. CODEINE SULFATE [Concomitant]
  13. CYPROHEPTADINE HYDROCHLORIDE [Concomitant]
  14. DEXAMETHASONE [Concomitant]
  15. DIMENHYDRINATE [Concomitant]
  16. (DOCUSATE SODIUM) [Concomitant]
  17. DOXORUBICIN HCL [Concomitant]
  18. EMEND [Concomitant]
  19. FOLIC ACID [Concomitant]
  20. (FUROSEMIDE) [Concomitant]
  21. HYDROMORPHONE HYDROCHLORIDE [Concomitant]
  22. KETAMINE HCL [Concomitant]
  23. LORAZEPAM [Concomitant]
  24. (MAGNESIUM) [Concomitant]
  25. MAGNESIUM HYDROXIDE TAB [Concomitant]
  26. MAGNESIUM SULFATE [Concomitant]
  27. METOCLOPRAMIDE [Concomitant]
  28. (NABILONE) [Concomitant]
  29. NALOXONE [Concomitant]
  30. NAPROXEN [Concomitant]
  31. NEUPOGEN [Concomitant]
  32. NYSTATIN [Concomitant]
  33. ONDANSETRON [Concomitant]
  34. POTASSIUM CHLORIDE [Concomitant]
  35. PROPYLENE GLYCOL [Concomitant]
  36. RANITIDINE [Concomitant]
  37. AMOXICILLIN AND CLAVULANATE POTASSIUM [Concomitant]
  38. (SENNOSIDE /00571902/) [Concomitant]
  39. SULFAMETHOXAZOLE AND TRIMETHOPRIM [Concomitant]
  40. TERBUTALINE SULFATE [Concomitant]
  41. (TICARCILLIN) [Concomitant]
  42. TOBRAMYCIN [Concomitant]
  43. (VANCOMYCIN) [Concomitant]
  44. (ZINECARD /01200102/) [Concomitant]
  45. (DIPHENHYDRAMINE) [Concomitant]
  46. DIMENHYDRINATE [Concomitant]

REACTIONS (1)
  - LUNG NEOPLASM [None]
